FAERS Safety Report 8272426-X (Version None)
Quarter: 2012Q2

REPORT INFORMATION
  Report Type: 
  Country: None (occurrence: None)
  Receive Date: 20120410
  Receipt Date: 20120404
  Transmission Date: 20120825
  Serious: Yes (Life-Threatening, Hospitalization, Other)
  Sender: FDA-Public Use
  Company Number: US-PFIZER INC-2012084413

PATIENT
  Sex: Female
  Weight: 101.13 kg

DRUGS (5)
  1. DESVENLAFAXINE SUCCINATE MONOHYDRATE [Suspect]
     Indication: MAJOR DEPRESSION
     Dosage: 2 TABLETS, ONCE DAILY
     Route: 048
     Dates: start: 20120315, end: 20120327
  2. XANAX [Suspect]
     Dosage: 0.5 MG, 20 TABLETS
  3. ORTHO TRI-CYCLEN LO [Concomitant]
     Indication: CONTRACEPTION
     Dosage: 1 TABLET DAILY
     Route: 048
     Dates: start: 20120201
  4. LORATADINE [Concomitant]
     Indication: SINUS CONGESTION
     Dosage: 10 MG, DAILY
     Route: 048
     Dates: start: 20050101
  5. TYLENOL ARTHRITIS [Concomitant]
     Indication: HEADACHE
     Dosage: 1300 MG, PRN
     Route: 048
     Dates: start: 20090101

REACTIONS (5)
  - SUICIDE ATTEMPT [None]
  - INTENTIONAL OVERDOSE [None]
  - HYPERTHERMIA [None]
  - SERUM SEROTONIN INCREASED [None]
  - MOTOR DYSFUNCTION [None]
